FAERS Safety Report 9003972 (Version 1)
Quarter: 2013Q1

REPORT INFORMATION
  Report Type: Spontaneous
  Country: US (occurrence: US)
  Receive Date: 20130109
  Receipt Date: 20130109
  Transmission Date: 20140127
  Serious: Yes (Death)
  Sender: FDA-Public Use
  Company Number: US-009507513-1301USA001812

PATIENT
  Age: 63 Year
  Sex: Male

DRUGS (6)
  1. MONTELUKAST SODIUM [Suspect]
     Indication: CHRONIC OBSTRUCTIVE PULMONARY DISEASE
  2. TRAMADOL HYDROCHLORIDE [Suspect]
  3. SERETIDE [Suspect]
  4. SALBUTAMOL [Suspect]
  5. LISINOPRIL [Suspect]
  6. ISOPHANE INSULIN [Suspect]

REACTIONS (1)
  - Lobar pneumonia [Fatal]
